FAERS Safety Report 17303590 (Version 8)
Quarter: 2020Q3

REPORT INFORMATION
  Report Type: Report from Study
  Country: US (occurrence: US)
  Receive Date: 20200122
  Receipt Date: 20200723
  Transmission Date: 20201102
  Serious: Yes (Hospitalization)
  Sender: FDA-Public Use
  Company Number: US-ACTELION-A-US2018-181736

PATIENT
  Age: 44 Year
  Sex: Female
  Weight: 73.47 kg

DRUGS (7)
  1. VELETRI [Suspect]
     Active Substance: EPOPROSTENOL
     Indication: PULMONARY ARTERIAL HYPERTENSION
     Dosage: 45 NG/KG, PER MIN
     Route: 042
  2. LETAIRIS [Concomitant]
     Active Substance: AMBRISENTAN
  3. ADEMPAS [Concomitant]
     Active Substance: RIOCIGUAT
     Dosage: 1 MG, TID
  4. VELETRI [Suspect]
     Active Substance: EPOPROSTENOL
     Dosage: UNK
     Route: 042
  5. ELIQUIS [Concomitant]
     Active Substance: APIXABAN
  6. ADEMPAS [Concomitant]
     Active Substance: RIOCIGUAT
     Dosage: 2.5 MG, TID
  7. VELETRI [Suspect]
     Active Substance: EPOPROSTENOL
     Dosage: 45 NG/KG, PER MIN
     Route: 042

REACTIONS (17)
  - Vomiting [Unknown]
  - Respiratory tract infection [Unknown]
  - Emergency care [Unknown]
  - Cholelithiasis [Unknown]
  - Pancreatic stent removal [Unknown]
  - Back pain [Unknown]
  - Abdominal pain [Unknown]
  - Dyspnoea exertional [Unknown]
  - Nausea [Unknown]
  - Flushing [Unknown]
  - Myalgia [Unknown]
  - Headache [Unknown]
  - Malaise [Unknown]
  - Cholecystectomy [Unknown]
  - Pancreatitis [Unknown]
  - Hot flush [Not Recovered/Not Resolved]
  - Heart rate increased [Not Recovered/Not Resolved]

NARRATIVE: CASE EVENT DATE: 20200108
